FAERS Safety Report 8487124-7 (Version None)
Quarter: 2012Q3

REPORT INFORMATION
  Report Type: 
  Country: None (occurrence: None)
  Receive Date: 20120704
  Receipt Date: 20120702
  Transmission Date: 20120928
  Serious: Yes (Death)
  Sender: FDA-Public Use
  Company Number: PHHY2012NL056831

PATIENT
  Sex: Male

DRUGS (3)
  1. ZOLEDRONOC ACID [Suspect]
     Dosage: 5 MG/100ML  YEARLY
     Route: 042
     Dates: start: 20100819
  2. ZOLEDRONOC ACID [Suspect]
     Dosage: 5 MG/100ML  YEARLY
     Route: 042
     Dates: start: 20110824
  3. ZOLEDRONOC ACID [Suspect]
     Indication: OSTEOPOROSIS
     Dosage: 5 MG/100ML YEARLY
     Route: 042
     Dates: start: 20090813

REACTIONS (1)
  - DEATH [None]
